FAERS Safety Report 9310515 (Version 1)
Quarter: 2013Q2

REPORT INFORMATION
  Report Type: Spontaneous
  Country: US (occurrence: US)
  Receive Date: 20130527
  Receipt Date: 20130527
  Transmission Date: 20140414
  Serious: No
  Sender: FDA-Public Use
  Company Number: US-PFIZER INC-2013160416

PATIENT
  Age: 46 Year
  Sex: Female
  Weight: 47.62 kg

DRUGS (2)
  1. NEURONTIN [Suspect]
     Indication: CONVULSION
     Dosage: 100MG ONCE A DAY
     Route: 048
     Dates: start: 201305, end: 201305
  2. TRAZODONE [Concomitant]
     Indication: SLEEP DISORDER
     Dosage: 50 MG, ONCE EVERY NIGHT

REACTIONS (3)
  - Drug intolerance [Recovered/Resolved]
  - Feeling abnormal [Recovered/Resolved]
  - Dizziness [Recovered/Resolved]
